FAERS Safety Report 11001940 (Version 1)
Quarter: 2015Q2

REPORT INFORMATION
  Report Type: Report from Study
  Country: EC (occurrence: EC)
  Receive Date: 20150408
  Receipt Date: 20150408
  Transmission Date: 20150821
  Serious: Yes (Hospitalization, Other)
  Sender: FDA-Public Use
  Company Number: PHHY2015EC037564

PATIENT
  Age: 29 Year
  Sex: Female

DRUGS (3)
  1. TOPASEL [Concomitant]
     Indication: CONTRACEPTION
     Dosage: 1 DF, QMO
     Route: 065
  2. TASIGNA [Suspect]
     Active Substance: NILOTINIB
     Dosage: 200 MG, TID
     Route: 048
     Dates: start: 20150305
  3. TASIGNA [Suspect]
     Active Substance: NILOTINIB
     Indication: CHRONIC MYELOID LEUKAEMIA
     Dosage: 200 MG, BID
     Route: 048
     Dates: start: 20141001, end: 20150101

REACTIONS (3)
  - Abortion spontaneous [Recovering/Resolving]
  - Maternal exposure during pregnancy [Recovered/Resolved]
  - Abdominal pain upper [Unknown]

NARRATIVE: CASE EVENT DATE: 20141001
